FAERS Safety Report 18307069 (Version 1)
Quarter: 2020Q3

REPORT INFORMATION
  Report Type: Spontaneous
  Country: US (occurrence: US)
  Receive Date: 20200923
  Receipt Date: 20200923
  Transmission Date: 20201103
  Serious: Yes (Hospitalization)
  Sender: FDA-Public Use
  Company Number: None

PATIENT
  Age: 62 Year
  Sex: Male
  Weight: 156.49 kg

DRUGS (2)
  1. TOPIRAMATE (TOPIRAMATE 25MG TAB) [Suspect]
     Active Substance: TOPIRAMATE
     Indication: TREMOR
     Route: 048
     Dates: start: 20200522, end: 20200620
  2. TOPIRAMATE (TOPIRAMATE 25MG TAB) [Suspect]
     Active Substance: TOPIRAMATE
     Indication: HEADACHE
     Route: 048
     Dates: start: 20200522, end: 20200620

REACTIONS (8)
  - Dizziness [None]
  - Hypotension [None]
  - Decreased appetite [None]
  - Fatigue [None]
  - Headache [None]
  - Muscular weakness [None]
  - Acute kidney injury [None]
  - Diarrhoea [None]

NARRATIVE: CASE EVENT DATE: 20200619
